FAERS Safety Report 5428846-1 (Version None)
Quarter: 2007Q3

REPORT INFORMATION
  Report Type: 
  Country: None (occurrence: None)
  Receive Date: 20070829
  Receipt Date: 20070226
  Transmission Date: 20080115
  Serious: No
  Sender: FDA-Public Use
  Company Number: A0640987A

PATIENT
  Age: 42 Year
  Sex: Female

DRUGS (1)
  1. ZOVIRAX [Suspect]
     Dosage: 5TAB SEVEN TIMES PER DAY
     Route: 048
     Dates: start: 20070218, end: 20070225

REACTIONS (1)
  - DRUG INEFFECTIVE [None]
